FAERS Safety Report 9837424 (Version 3)
Quarter: 2014Q1

REPORT INFORMATION
  Report Type: Spontaneous
  Country: US (occurrence: US)
  Receive Date: 20140123
  Receipt Date: 20140210
  Transmission Date: 20141002
  Serious: Yes (Death)
  Sender: FDA-Public Use
  Company Number: US-FRI-1000052998

PATIENT
  Age: 71 Year
  Sex: Male
  Weight: 63.5 kg

DRUGS (10)
  1. TUDORZA PRESSAIR [Suspect]
     Indication: CHRONIC OBSTRUCTIVE PULMONARY DISEASE
     Dosage: 800 MCG
     Route: 055
     Dates: start: 20131115
  2. DUONEB [Concomitant]
     Indication: CHRONIC OBSTRUCTIVE PULMONARY DISEASE
     Dosage: 3 ML 4 TIMES DAILY
     Route: 055
  3. THEOPHYLLINE [Concomitant]
     Indication: CHRONIC OBSTRUCTIVE PULMONARY DISEASE
     Dosage: 100 MG
     Route: 048
  4. VENTOLIN [Concomitant]
     Indication: CHRONIC OBSTRUCTIVE PULMONARY DISEASE
     Dosage: 2 PUFFS EVERY 4 HOURS
     Route: 055
  5. OXYGEN [Concomitant]
     Indication: CHRONIC OBSTRUCTIVE PULMONARY DISEASE
  6. ACCUPRIL [Concomitant]
  7. ASPIRIN [Concomitant]
     Dosage: 81 MG
  8. NORVASC [Concomitant]
  9. SINGULAIR [Concomitant]
     Dosage: 10 MG
     Route: 048
  10. SYMBICORT [Concomitant]
     Dosage: 2 PUFFS TWICE DAILY
     Route: 055

REACTIONS (1)
  - Chest pain [Fatal]
